FAERS Safety Report 9606996 (Version 2)
Quarter: 2014Q1

REPORT INFORMATION
  Report Type: Spontaneous
  Country: NL (occurrence: NL)
  Receive Date: 20131009
  Receipt Date: 20140124
  Transmission Date: 20141002
  Serious: Yes (Other)
  Sender: FDA-Public Use
  Company Number: NL-009507513-1310NLD002672

PATIENT
  Sex: Female

DRUGS (7)
  1. COZAAR [Suspect]
     Indication: HYPERTENSION
     Dosage: FREQUENCY; 100MG IN THEMORNING AND 50MG IN THE EVENING  BID
     Route: 048
  2. COZAAR [Suspect]
     Indication: EJECTION FRACTION
  3. ATENOLOL [Concomitant]
     Indication: HYPERTENSION
     Dosage: 50 MG, QD
     Route: 048
  4. ATENOLOL [Concomitant]
     Indication: HYPERTENSION
     Dosage: 25 MG, QD
     Route: 048
  5. PANTOZOL [Concomitant]
     Indication: PROPHYLAXIS AGAINST GASTROINTESTINAL ULCER
     Dosage: 40 MG, QD
     Route: 048
  6. MS CONTIN [Concomitant]
     Indication: PAIN
     Dosage: 30-45 MG DAILY
     Route: 048
  7. HERCEPTIN [Concomitant]

REACTIONS (7)
  - Breast cancer [Not Recovered/Not Resolved]
  - Metastasis [Not Recovered/Not Resolved]
  - Cardiac disorder [Unknown]
  - Muscle spasms [Recovered/Resolved]
  - Pruritus generalised [Recovered/Resolved]
  - Oral pruritus [Recovered/Resolved]
  - Dry mouth [Recovered/Resolved]
